FAERS Safety Report 24122673 (Version 2)
Quarter: 2024Q4

REPORT INFORMATION
  Report Type: Spontaneous
  Country: JP (occurrence: JP)
  Receive Date: 20240723
  Receipt Date: 20241225
  Transmission Date: 20250115
  Serious: Yes (Other)
  Sender: GLAXOSMITHKLINE
  Company Number: JP-GSKNCCC-Case-02026004_AE-85595

PATIENT

DRUGS (2)
  1. ATOVAQUONE [Suspect]
     Active Substance: ATOVAQUONE
     Dosage: 10 MG, 1D
     Dates: start: 202406
  2. SULFAMETHOXAZOLE\TRIMETHOPRIM [Concomitant]
     Active Substance: SULFAMETHOXAZOLE\TRIMETHOPRIM
     Indication: Prophylaxis
     Dosage: UNK

REACTIONS (1)
  - Gastric fistula [Unknown]
